FAERS Safety Report 5929404-2 (Version None)
Quarter: 2008Q3

REPORT INFORMATION
  Report Type: 
  Country: None (occurrence: None)
  Receive Date: 20080923
  Receipt Date: 20080425
  Transmission Date: 20090109
  Serious: No
  Sender: FDA-Public Use
  Company Number: 20080113

PATIENT
  Age: 82 Year
  Sex: Female
  Weight: 63.6 kg

DRUGS (1)
  1. AMINOPHYLLIN [Suspect]
     Dosage: 100 MG ONCE
     Dates: start: 20080422, end: 20080422

REACTIONS (1)
  - MUSCLE TWITCHING [None]
